FAERS Safety Report 8996872 (Version 1)
Quarter: 2013Q1

REPORT INFORMATION
  Report Type: Spontaneous
  Country: GB (occurrence: GB)
  Receive Date: 20130104
  Receipt Date: 20130104
  Transmission Date: 20140127
  Serious: Yes (Other)
  Sender: FDA-Public Use
  Company Number: GB-ASTRAZENECA-2012SE96226

PATIENT
  Age: 18262 Day
  Sex: Female

DRUGS (1)
  1. LISINOPRIL [Suspect]
     Indication: BLOOD PRESSURE ABNORMAL
     Route: 048

REACTIONS (4)
  - White blood cell count decreased [Unknown]
  - Biopsy bone marrow abnormal [Unknown]
  - Anaemia [Unknown]
  - Platelet count decreased [Unknown]
